FAERS Safety Report 9341513 (Version 2)
Quarter: 2013Q2

REPORT INFORMATION
  Report Type: Spontaneous
  Country: US (occurrence: US)
  Receive Date: 20130611
  Receipt Date: 20130627
  Transmission Date: 20140414
  Serious: Yes (Other)
  Sender: FDA-Public Use
  Company Number: US-JNJFOC-20130600371

PATIENT
  Age: 65 Year
  Sex: Female
  Weight: 111.13 kg

DRUGS (4)
  1. DOXORUBICIN HYDROCHLORIDE (DOXIL) [Suspect]
     Indication: CERVIX CARCINOMA
     Route: 042
  2. DOXORUBICIN HYDROCHLORIDE (DOXIL) [Suspect]
     Indication: CERVIX CARCINOMA
     Route: 042
     Dates: start: 201304
  3. LEVOTEC [Concomitant]
     Indication: HYPOTHYROIDISM
     Route: 048
     Dates: start: 2012
  4. TYLENOL [Concomitant]
     Indication: PAIN
     Route: 048
     Dates: start: 201205

REACTIONS (16)
  - Thrombosis [Not Recovered/Not Resolved]
  - Pelvic neoplasm [Not Recovered/Not Resolved]
  - Venous occlusion [Unknown]
  - Lymphadenopathy [Not Recovered/Not Resolved]
  - Social problem [Not Recovered/Not Resolved]
  - Surgery [Unknown]
  - Malaise [Unknown]
  - Nausea [Not Recovered/Not Resolved]
  - Pain [Not Recovered/Not Resolved]
  - Abasia [Not Recovered/Not Resolved]
  - Eating disorder [Recovered/Resolved]
  - Rash [Not Recovered/Not Resolved]
  - Weight decreased [Unknown]
  - Muscle atrophy [Unknown]
  - Asthenia [Not Recovered/Not Resolved]
  - Off label use [Unknown]
